FAERS Safety Report 25529972 (Version 2)
Quarter: 2025Q3

REPORT INFORMATION
  Report Type: Spontaneous
  Country: US (occurrence: US)
  Receive Date: 20250708
  Receipt Date: 20250805
  Transmission Date: 20251021
  Serious: No
  Sender: MERZ
  Company Number: US-MRZWEB-2025060000247

PATIENT

DRUGS (6)
  1. XEOMIN [Suspect]
     Active Substance: INCOBOTULINUMTOXINA
     Indication: Skin cosmetic procedure
     Dates: start: 20250617, end: 20250617
  2. XEOMIN [Suspect]
     Active Substance: INCOBOTULINUMTOXINA
     Indication: Skin wrinkling
  3. XEOMIN [Suspect]
     Active Substance: INCOBOTULINUMTOXINA
     Indication: Skin cosmetic procedure
  4. XEOMIN [Suspect]
     Active Substance: INCOBOTULINUMTOXINA
     Indication: Headache
  5. BOTOX [Concomitant]
     Active Substance: ONABOTULINUMTOXINA
  6. DAXXIFY [Concomitant]
     Active Substance: DAXIBOTULINUMTOXIN A-LANM

REACTIONS (3)
  - Injection site pain [Recovered/Resolved]
  - Suspected product quality issue [Unknown]
  - Product use in unapproved indication [Unknown]

NARRATIVE: CASE EVENT DATE: 20250617
